FAERS Safety Report 23829625 (Version 2)
Quarter: 2024Q2

REPORT INFORMATION
  Report Type: Report from Study
  Country: ES (occurrence: ES)
  Receive Date: 20240508
  Receipt Date: 20240626
  Transmission Date: 20240715
  Serious: Yes (Other)
  Sender: FDA-Public Use
  Company Number: ES-TAKEDA-2024TUS044575

PATIENT
  Age: 70 Year
  Sex: Male

DRUGS (20)
  1. TEDUGLUTIDE [Suspect]
     Active Substance: TEDUGLUTIDE
     Indication: Short-bowel syndrome
     Dosage: 3.95 MILLIGRAM, QD
     Route: 042
     Dates: start: 20190425, end: 20210630
  2. TEDUGLUTIDE [Suspect]
     Active Substance: TEDUGLUTIDE
     Indication: Short-bowel syndrome
     Dosage: 3.95 MILLIGRAM, QD
     Route: 042
     Dates: start: 20190425, end: 20210630
  3. TEDUGLUTIDE [Suspect]
     Active Substance: TEDUGLUTIDE
     Indication: Short-bowel syndrome
     Dosage: 3.95 MILLIGRAM, QD
     Route: 042
     Dates: start: 20190425, end: 20210630
  4. TEDUGLUTIDE [Suspect]
     Active Substance: TEDUGLUTIDE
     Indication: Short-bowel syndrome
     Dosage: 3.95 MILLIGRAM, QD
     Route: 042
     Dates: start: 20190425, end: 20210630
  5. TEDUGLUTIDE [Suspect]
     Active Substance: TEDUGLUTIDE
     Dosage: 1.9 MILLIGRAM, QD
     Route: 042
     Dates: start: 20210630, end: 20210727
  6. TEDUGLUTIDE [Suspect]
     Active Substance: TEDUGLUTIDE
     Dosage: 1.9 MILLIGRAM, QD
     Route: 042
     Dates: start: 20210630, end: 20210727
  7. TEDUGLUTIDE [Suspect]
     Active Substance: TEDUGLUTIDE
     Dosage: 1.9 MILLIGRAM, QD
     Route: 042
     Dates: start: 20210630, end: 20210727
  8. TEDUGLUTIDE [Suspect]
     Active Substance: TEDUGLUTIDE
     Dosage: 1.9 MILLIGRAM, QD
     Route: 042
     Dates: start: 20210630, end: 20210727
  9. TEDUGLUTIDE [Suspect]
     Active Substance: TEDUGLUTIDE
     Dosage: 3.6 MILLIGRAM, QD
     Route: 042
     Dates: start: 20210728, end: 20210930
  10. TEDUGLUTIDE [Suspect]
     Active Substance: TEDUGLUTIDE
     Dosage: 3.6 MILLIGRAM, QD
     Route: 042
     Dates: start: 20210728, end: 20210930
  11. TEDUGLUTIDE [Suspect]
     Active Substance: TEDUGLUTIDE
     Dosage: 3.6 MILLIGRAM, QD
     Route: 042
     Dates: start: 20210728, end: 20210930
  12. TEDUGLUTIDE [Suspect]
     Active Substance: TEDUGLUTIDE
     Dosage: 3.6 MILLIGRAM, QD
     Route: 042
     Dates: start: 20210728, end: 20210930
  13. TEDUGLUTIDE [Suspect]
     Active Substance: TEDUGLUTIDE
     Dosage: 3.7 MILLIGRAM, QD
     Route: 042
     Dates: start: 20211001
  14. TEDUGLUTIDE [Suspect]
     Active Substance: TEDUGLUTIDE
     Dosage: 3.7 MILLIGRAM, QD
     Route: 042
     Dates: start: 20211001
  15. TEDUGLUTIDE [Suspect]
     Active Substance: TEDUGLUTIDE
     Dosage: 3.7 MILLIGRAM, QD
     Route: 042
     Dates: start: 20211001
  16. TEDUGLUTIDE [Suspect]
     Active Substance: TEDUGLUTIDE
     Dosage: 3.7 MILLIGRAM, QD
     Route: 042
     Dates: start: 20211001
  17. RIFAXIMIN [Concomitant]
     Active Substance: RIFAXIMIN
     Indication: Abdominal pain upper
     Dosage: 200 MILLIGRAM, TID
     Route: 048
     Dates: start: 20240415, end: 20240422
  18. FISIOGEN FERRO FORTE [Concomitant]
     Indication: Iron deficiency
     Dosage: 1 DOSAGE FORM, QD
     Route: 048
     Dates: start: 20230728
  19. FERROUS GLYCINE SULFATE [Concomitant]
     Active Substance: FERROUS GLYCINE SULFATE
     Indication: Iron deficiency
     Dosage: 1 DOSAGE FORM, QD
     Route: 048
     Dates: start: 20230725, end: 20230728
  20. Ebastel forte [Concomitant]
     Indication: Urticaria chronic
     Dosage: 1 DOSAGE FORM, BID
     Route: 048
     Dates: start: 20220509

REACTIONS (1)
  - Erectile dysfunction [Not Recovered/Not Resolved]

NARRATIVE: CASE EVENT DATE: 20240430
